FAERS Safety Report 18641750 (Version 1)
Quarter: 2020Q4

REPORT INFORMATION
  Report Type: Spontaneous
  Country: JP (occurrence: JP)
  Receive Date: 20201221
  Receipt Date: 20201221
  Transmission Date: 20210114
  Serious: Yes (Other)
  Sender: FDA-Public Use
  Company Number: NVSJ2020JP013789

PATIENT
  Age: 43 Year
  Sex: Female

DRUGS (1)
  1. FEMARA [Suspect]
     Active Substance: LETROZOLE
     Indication: BREAST CANCER FEMALE
     Dosage: UNK
     Route: 048

REACTIONS (4)
  - Pain [Unknown]
  - Thyroid function test abnormal [Unknown]
  - Palpitations [Unknown]
  - Visual acuity reduced [Unknown]
